APPROVED DRUG PRODUCT: BENAZEPRIL HYDROCHLORIDE
Active Ingredient: BENAZEPRIL HYDROCHLORIDE
Strength: 40MG
Dosage Form/Route: TABLET;ORAL
Application: A076476 | Product #004
Applicant: GENPHARM INC
Approved: Feb 11, 2004 | RLD: No | RS: No | Type: DISCN